FAERS Safety Report 19238366 (Version 1)
Quarter: 2021Q2

REPORT INFORMATION
  Report Type: Spontaneous
  Country: PL (occurrence: PL)
  Receive Date: 20210510
  Receipt Date: 20210510
  Transmission Date: 20210717
  Serious: Yes (Other)
  Sender: FDA-Public Use
  Company Number: PL-GLAXOSMITHKLINE-PL2021097481

PATIENT
  Age: 9 Year
  Sex: Female
  Weight: 52.8 kg

DRUGS (2)
  1. BIOTRAKSON [Suspect]
     Active Substance: CEFTRIAXONE SODIUM
     Indication: MENINGITIS VIRAL
     Dosage: 8 G
     Route: 042
     Dates: start: 20180925, end: 20181006
  2. ACICLOVIR [Suspect]
     Active Substance: ACYCLOVIR
     Indication: MENINGITIS VIRAL
     Dosage: 750 MG
     Route: 042
     Dates: start: 20180925, end: 20181006

REACTIONS (1)
  - Erythema [Unknown]

NARRATIVE: CASE EVENT DATE: 20181006
